FAERS Safety Report 13156217 (Version 2)
Quarter: 2017Q1

REPORT INFORMATION
  Report Type: Spontaneous
  Country: US (occurrence: US)
  Receive Date: 20170126
  Receipt Date: 20170314
  Transmission Date: 20170428
  Serious: No
  Sender: FDA-Public Use
  Company Number: US-009507513-1701USA007984

PATIENT
  Age: 43 Year
  Sex: Female

DRUGS (7)
  1. OXYCOD [Concomitant]
  2. INTRON A [Suspect]
     Active Substance: INTERFERON ALFA-2B
     Dosage: STRENGTH 18 MU MDV,  DOSE 0.1 ML (0.6 MIU), 3 TIMES PER WEEK
     Route: 058
     Dates: start: 20170113, end: 20170113
  3. INTRON A [Suspect]
     Active Substance: INTERFERON ALFA-2B
     Indication: MALIGNANT MELANOMA
     Dosage: STRENGTH 18 MU MDV,  DOSE 0.1 ML (0.6 MIU), 3 TIMES PER WEEK
     Route: 058
     Dates: start: 20170111, end: 20170111
  4. INTRON A [Suspect]
     Active Substance: INTERFERON ALFA-2B
     Dosage: STRENGTH 18 MU MDV,  DOSE 0.63 ML (5MU), 3 TIMES PER WEEK
     Route: 058
     Dates: start: 20161026
  5. INTRON A [Suspect]
     Active Substance: INTERFERON ALFA-2B
     Dosage: STRENGTH 18 MU MDV, DOSE 0.1 ML (0.6 MIU), 3 TIMES PER WEEK
     Route: 058
     Dates: start: 20170116, end: 20170116
  6. APAP [Concomitant]
     Active Substance: ACETAMINOPHEN
  7. INTRON A [Suspect]
     Active Substance: INTERFERON ALFA-2B
     Dosage: STRENGTH 18 MU MDV,  DOSE 0.63 ML (5MU), 3 TIMES PER WEEK
     Route: 058
     Dates: start: 20161026

REACTIONS (1)
  - Accidental underdose [Unknown]

NARRATIVE: CASE EVENT DATE: 20170111
